FAERS Safety Report 11795878 (Version 4)
Quarter: 2017Q3

REPORT INFORMATION
  Report Type: Report from Study
  Country: CA (occurrence: CA)
  Receive Date: 20151203
  Receipt Date: 20170914
  Transmission Date: 20171127
  Serious: Yes (Hospitalization)
  Sender: FDA-Public Use
  Company Number: CA-ROCHE-1671194

PATIENT
  Age: 75 Year
  Sex: Male

DRUGS (4)
  1. ESBRIET [Suspect]
     Active Substance: PIRFENIDONE
     Indication: IDIOPATHIC PULMONARY FIBROSIS
     Route: 048
     Dates: start: 20141207
  2. ESBRIET [Suspect]
     Active Substance: PIRFENIDONE
     Route: 048
  3. PENTASA [Concomitant]
     Active Substance: MESALAMINE
  4. ESBRIET [Suspect]
     Active Substance: PIRFENIDONE
     Route: 048

REACTIONS (2)
  - Pancreatitis [Recovering/Resolving]
  - Intestinal cyst [Unknown]

NARRATIVE: CASE EVENT DATE: 20151006
